FAERS Safety Report 7977639-X (Version None)
Quarter: 2011Q4

REPORT INFORMATION
  Report Type: 
  Country: None (occurrence: None)
  Receive Date: 20111214
  Receipt Date: 20111125
  Transmission Date: 20120403
  Serious: No
  Sender: FDA-Public Use
  Company Number: US-AMGEN-USASP2011062828

PATIENT
  Age: 75 Year
  Sex: Male

DRUGS (2)
  1. ENBREL [Suspect]
     Indication: REITER'S SYNDROME
     Dosage: UNK
     Dates: start: 20050101
  2. METHOTREXATE [Concomitant]
     Dates: start: 20050101

REACTIONS (6)
  - HEADACHE [None]
  - DIZZINESS [None]
  - ACNE [None]
  - NAUSEA [None]
  - MEMORY IMPAIRMENT [None]
  - PRURITUS GENERALISED [None]
